FAERS Safety Report 6023720-4 (Version None)
Quarter: 2008Q4

REPORT INFORMATION
  Report Type: 
  Country: None (occurrence: None)
  Receive Date: 20081230
  Receipt Date: 20081222
  Transmission Date: 20090506
  Serious: Yes (Hospitalization)
  Sender: FDA-Public Use
  Company Number: CA-ABBOTT-08P-028-0490072-00

PATIENT
  Sex: Female

DRUGS (3)
  1. LUPRON DEPOT [Suspect]
     Indication: UTERINE LEIOMYOMA
     Route: 030
  2. LUPRON DEPOT [Suspect]
     Indication: MENSTRUAL CYCLE MANAGEMENT
     Route: 030
  3. ADD-BACK THERAPY [Concomitant]
     Indication: MENSTRUAL CYCLE MANAGEMENT

REACTIONS (1)
  - VAGINAL HAEMORRHAGE [None]
